FAERS Safety Report 4598220-9 (Version None)
Quarter: 2005Q1

REPORT INFORMATION
  Report Type: 
  Country: None (occurrence: None)
  Receive Date: 20050301
  Receipt Date: 20050301
  Transmission Date: 20050727
  Serious: Yes (Hospitalization)
  Sender: FDA-Public Use
  Company Number: None

PATIENT
  Sex: Male

DRUGS (17)
  1. ISOSORBIDE DINITRATE [Suspect]
     Indication: CORONARY ARTERY DISEASE
     Dosage: 40 MG   BID   ORAL
     Route: 048
  2. ASPIRIN [Concomitant]
  3. BISACODYL [Concomitant]
  4. CARBIDOPA AND LEVODOPA [Concomitant]
  5. CYANOCOBALAMIN [Concomitant]
  6. DOCUSATE/SENNA [Concomitant]
  7. FINASTERIDE [Concomitant]
  8. FOLIC ACID [Concomitant]
  9. LACTULOSE [Concomitant]
  10. MAGNESIUM CITRATE, [Concomitant]
  11. METOPROLOL [Concomitant]
  12. MIRTAZAPINE [Concomitant]
  13. MULTI-VITAMIN [Concomitant]
  14. NAPROXEN [Concomitant]
  15. OMEPRAZOLE [Concomitant]
  16. RIMANTIDINE [Concomitant]
  17. SIMVASTATIN [Concomitant]

REACTIONS (3)
  - BLOOD PRESSURE SYSTOLIC DECREASED [None]
  - DIZZINESS [None]
  - FALL [None]
